FAERS Safety Report 9078923 (Version 1)
Quarter: 2013Q1

REPORT INFORMATION
  Report Type: Report from Study
  Country: US (occurrence: US)
  Receive Date: 20130130
  Receipt Date: 20130130
  Transmission Date: 20140127
  Serious: No
  Sender: FDA-Public Use
  Company Number: US-ABBOTT-12P-163-0971798-00

PATIENT
  Sex: Female
  Weight: 71.73 kg

DRUGS (7)
  1. HUMIRA 40 MG/0.8 ML PEN [Suspect]
     Indication: COLITIS ULCERATIVE
     Route: 058
     Dates: start: 201206, end: 20120820
  2. HUMIRA 40 MG/0.8 ML PEN [Suspect]
     Indication: RHEUMATOID ARTHRITIS
     Dosage: LOADING DOSE
     Route: 058
     Dates: start: 20120820, end: 20120820
  3. HUMIRA 40 MG/0.8 ML PEN [Suspect]
     Route: 058
  4. PREDNISONE [Concomitant]
     Indication: COLITIS ULCERATIVE
  5. ASACOL [Concomitant]
     Indication: COLITIS ULCERATIVE
  6. METHOTREXATE [Concomitant]
     Indication: COLITIS ULCERATIVE
  7. PROBIOTIC [Concomitant]
     Indication: SUPPLEMENTATION THERAPY

REACTIONS (1)
  - Off label use [Not Recovered/Not Resolved]
